FAERS Safety Report 10205253 (Version 2)
Quarter: 2014Q2

REPORT INFORMATION
  Report Type: Spontaneous
  Country: DK (occurrence: FR)
  Receive Date: 20140529
  Receipt Date: 20140529
  Transmission Date: 20141212
  Serious: Yes (Hospitalization)
  Sender: FDA-Public Use
  Company Number: FR-FRI-1000067096

PATIENT
  Age: 36 Year
  Sex: Male

DRUGS (3)
  1. ESCITALOPRAM [Suspect]
     Indication: DEPRESSIVE SYMPTOM
     Dosage: 10 MG
     Route: 048
     Dates: start: 20140219
  2. LOXAPAC [Suspect]
     Dosage: 45 DF
     Route: 048
     Dates: start: 20140219, end: 20140219
  3. ATARAX [Suspect]
     Dosage: 150 MG
     Route: 048
     Dates: start: 20140217

REACTIONS (2)
  - Dyskinesia [Recovered/Resolved]
  - Muscle rigidity [Recovered/Resolved]
